FAERS Safety Report 8509161 (Version 4)
Quarter: 2015Q4

REPORT INFORMATION
  Report Type: Spontaneous
  Country: US (occurrence: US)
  Receive Date: 20120412
  Receipt Date: 20151120
  Transmission Date: 20160305
  Serious: No
  Sender: FDA-Public Use
  Company Number: US-ASTRAZENECA-2011SE42013

PATIENT
  Age: 55 Year
  Sex: Male

DRUGS (4)
  1. OMEPRAZOLE. [Suspect]
     Active Substance: OMEPRAZOLE
     Route: 048
  2. SYMBICORT [Suspect]
     Active Substance: BUDESONIDE\FORMOTEROL FUMARATE DIHYDRATE
     Dosage: 160/4.5 MG, UNKNOWN
     Route: 055
  3. NEXIUM [Suspect]
     Active Substance: ESOMEPRAZOLE MAGNESIUM
     Route: 048
  4. NEXIUM [Suspect]
     Active Substance: ESOMEPRAZOLE MAGNESIUM
     Route: 048

REACTIONS (8)
  - Dysphagia [Unknown]
  - Aphonia [Unknown]
  - Drug ineffective [Unknown]
  - Drug dose omission [Unknown]
  - Intentional product misuse [None]
  - Off label use [Unknown]
  - Gastrooesophageal reflux disease [Unknown]
  - Oropharyngeal discomfort [Unknown]
